FAERS Safety Report 10491488 (Version 1)
Quarter: 2014Q4

REPORT INFORMATION
  Report Type: Spontaneous
  Country: US (occurrence: US)
  Receive Date: 20141002
  Receipt Date: 20141002
  Transmission Date: 20150528
  Serious: Yes (Other)
  Sender: FDA-Public Use
  Company Number: US-GLAXOSMITHKLINE-A1053932A

PATIENT
  Age: 55 Year
  Sex: Female

DRUGS (7)
  1. TRAMADOL [Concomitant]
     Active Substance: TRAMADOL
  2. COMBIVENT [Concomitant]
     Active Substance: ALBUTEROL SULFATE\IPRATROPIUM BROMIDE
  3. XANAX [Concomitant]
     Active Substance: ALPRAZOLAM
  4. ALBUTEROL NEBULIZER [Concomitant]
     Active Substance: ALBUTEROL
  5. ATIVAN [Concomitant]
     Active Substance: LORAZEPAM
  6. ADVAIR HFA [Suspect]
     Active Substance: FLUTICASONE PROPIONATE\SALMETEROL XINAFOATE
     Indication: ASTHMA
     Dosage: 1PUFF TWICE PER DAY
     Route: 055
     Dates: start: 201308
  7. FLEXERIL [Concomitant]
     Active Substance: CYCLOBENZAPRINE HYDROCHLORIDE

REACTIONS (4)
  - Cough [Not Recovered/Not Resolved]
  - Product quality issue [Unknown]
  - Pulmonary congestion [Not Recovered/Not Resolved]
  - Drug ineffective [Not Recovered/Not Resolved]

NARRATIVE: CASE EVENT DATE: 201312
